FAERS Safety Report 8956851 (Version 1)
Quarter: 2012Q4

REPORT INFORMATION
  Report Type: Spontaneous
  Country: DE (occurrence: None)
  Receive Date: 20121128
  Receipt Date: 20121128
  Transmission Date: 20130627
  Serious: Yes (Other)
  Sender: FDA-Public Use
  Company Number: SP06226

PATIENT
  Age: 69 Year
  Sex: Male

DRUGS (1)
  1. MOVIPREP (SOLUTION) [Suspect]
     Indication: BOWEL PREPARATION
     Route: 048

REACTIONS (4)
  - Colitis ischaemic [None]
  - Pneumatosis intestinalis [None]
  - Large intestine polyp [None]
  - Colitis ulcerative [None]
